FAERS Safety Report 13113462 (Version 4)
Quarter: 2017Q4

REPORT INFORMATION
  Report Type: Spontaneous
  Country: US (occurrence: US)
  Receive Date: 20170113
  Receipt Date: 20171017
  Transmission Date: 20180320
  Serious: Yes (Hospitalization)
  Sender: FDA-Public Use
  Company Number: US-PFIZER INC-2017010498

PATIENT
  Age: 77 Year
  Sex: Male
  Weight: 86.17 kg

DRUGS (7)
  1. VFEND [Suspect]
     Active Substance: VORICONAZOLE
     Indication: PNEUMONIA
     Dosage: 300 MG, 2X/DAY
     Dates: start: 201507
  2. VFEND [Suspect]
     Active Substance: VORICONAZOLE
     Indication: ASPERGILLUS INFECTION
     Dosage: 300 MG, 2X/DAY (2 50 MG AND 1 200 MG OF VFEND SO IT MAKES 300 MG OF VFEND)
     Dates: start: 201508
  3. VIDAZA [Concomitant]
     Active Substance: AZACITIDINE
     Indication: LEUKAEMIA
     Dosage: UNK
     Dates: start: 201603
  4. VFEND [Suspect]
     Active Substance: VORICONAZOLE
     Dosage: 300 MG, 2X/DAY
  5. CARDIZEM [Concomitant]
     Active Substance: DILTIAZEM HYDROCHLORIDE
     Dosage: UNK
  6. VFEND [Suspect]
     Active Substance: VORICONAZOLE
     Dosage: 200 MG, 2X/DAY
  7. MICAFUNGIN [Concomitant]
     Active Substance: MICAFUNGIN
     Indication: ASPERGILLUS INFECTION
     Dosage: UNK, DAILY

REACTIONS (6)
  - Pyrexia [Recovering/Resolving]
  - Disease recurrence [Unknown]
  - Weight decreased [Unknown]
  - Intestinal perforation [Recovered/Resolved]
  - Liver disorder [Recovered/Resolved]
  - Bronchopulmonary aspergillosis [Unknown]

NARRATIVE: CASE EVENT DATE: 201708
